FAERS Safety Report 15500813 (Version 5)
Quarter: 2025Q1

REPORT INFORMATION
  Report Type: Report from Study
  Country: CA (occurrence: CA)
  Receive Date: 20181015
  Receipt Date: 20250129
  Transmission Date: 20250409
  Serious: Yes (Other)
  Sender: TAKEDA
  Company Number: CA-TAKEDA-2018TUS001861

PATIENT
  Age: 72 Year
  Sex: Male

DRUGS (13)
  1. VEDOLIZUMAB [Suspect]
     Active Substance: VEDOLIZUMAB
     Indication: Crohn^s disease
  2. VEDOLIZUMAB [Suspect]
     Active Substance: VEDOLIZUMAB
     Dosage: 300 MILLIGRAM, Q4WEEKS
     Dates: start: 20171013
  3. VEDOLIZUMAB [Suspect]
     Active Substance: VEDOLIZUMAB
     Dosage: 300 MILLIGRAM, Q4WEEKS
  4. VEDOLIZUMAB [Suspect]
     Active Substance: VEDOLIZUMAB
     Dosage: 300 MILLIGRAM, Q4WEEKS
  5. VEDOLIZUMAB [Suspect]
     Active Substance: VEDOLIZUMAB
     Dosage: 300 MILLIGRAM, Q4WEEKS
  6. CANDESARTAN [Concomitant]
     Active Substance: CANDESARTAN
  7. CHOLESTYRAMINE [Concomitant]
     Active Substance: CHOLESTYRAMINE
  8. SACCHAROMYCES CEREVISIAE [Concomitant]
     Active Substance: SACCHAROMYCES CEREVISIAE
  9. VITAMIN D3 [Concomitant]
     Active Substance: CHOLECALCIFEROL
  10. VITAMIN C [Concomitant]
     Active Substance: ASCORBIC ACID
  11. PANTOPRAZOLE [Concomitant]
     Active Substance: PANTOPRAZOLE
  12. CHOLESTYRAMINE [Concomitant]
     Active Substance: CHOLESTYRAMINE
  13. SPIRONOLACTONE [Concomitant]
     Active Substance: SPIRONOLACTONE

REACTIONS (5)
  - Squamous cell carcinoma of skin [Recovered/Resolved]
  - Basal cell carcinoma [Unknown]
  - Skin cancer [Not Recovered/Not Resolved]
  - Seborrhoeic keratosis [Unknown]
  - Off label use [Unknown]

NARRATIVE: CASE EVENT DATE: 20171013
